FAERS Safety Report 21620722 (Version 1)
Quarter: 2022Q4

REPORT INFORMATION
  Report Type: Spontaneous
  Country: US (occurrence: None)
  Receive Date: 20221118
  Receipt Date: 20221118
  Transmission Date: 20230112
  Serious: No
  Sender: FDA-Public Use
  Company Number: None

PATIENT
  Sex: Male
  Weight: 28 kg

DRUGS (2)
  1. CYCLOPHOSPHAMIDE [Suspect]
     Active Substance: CYCLOPHOSPHAMIDE
     Dates: end: 20220221
  2. THIOTEPA [Suspect]
     Active Substance: THIOTEPA
     Dates: end: 20220218

REACTIONS (4)
  - Blood bilirubin increased [None]
  - Ascites [None]
  - Haemofiltration [None]
  - Weight increased [None]

NARRATIVE: CASE EVENT DATE: 20220303
